FAERS Safety Report 10064857 (Version 2)
Quarter: 2014Q3

REPORT INFORMATION
  Report Type: Spontaneous
  Country: US (occurrence: None)
  Receive Date: 20140404
  Receipt Date: 20140717
  Transmission Date: 20150326
  Serious: Yes (Hospitalization)
  Sender: FDA-Public Use
  Company Number: 2014-US-003793

PATIENT
  Age: 19 Year
  Sex: Female
  Weight: 60.8 kg

DRUGS (4)
  1. PRIALT [Suspect]
     Active Substance: ZICONOTIDE ACETATE
     Indication: PAIN
     Route: 037
     Dates: start: 20130911
  2. PREVACID [Concomitant]
     Active Substance: LANSOPRAZOLE
  3. LORTAB [Concomitant]
     Active Substance: ACETAMINOPHEN\HYDROCODONE BITARTRATE
  4. DILAUDID [Concomitant]
     Active Substance: HYDROMORPHONE HYDROCHLORIDE

REACTIONS (4)
  - Nystagmus [None]
  - Muscular weakness [None]
  - Diplegia [None]
  - Dizziness [None]

NARRATIVE: CASE EVENT DATE: 20140128
